FAERS Safety Report 12214519 (Version 5)
Quarter: 2020Q3

REPORT INFORMATION
  Report Type: Spontaneous
  Country: FR (occurrence: FR)
  Receive Date: 20160328
  Receipt Date: 20200716
  Transmission Date: 20201102
  Serious: Yes (Congenital Anomaly, Other)
  Sender: FDA-Public Use
  Company Number: FR-ABBVIE-16P-056-1592178-00

PATIENT
  Age: 0 Day
  Sex: Female
  Weight: 2.6 kg

DRUGS (1)
  1. DEPAKINE CHRONO [Suspect]
     Active Substance: VALPROATE SODIUM
     Indication: MATERNAL EXPOSURE TIMING UNSPECIFIED
     Route: 064

REACTIONS (28)
  - Memory impairment [Unknown]
  - Tracheitis [Unknown]
  - Developmental delay [Not Recovered/Not Resolved]
  - Language disorder [Not Recovered/Not Resolved]
  - Myopia [Unknown]
  - Tonsillitis [Unknown]
  - Attention deficit hyperactivity disorder [Unknown]
  - Cough [Unknown]
  - Foetal exposure during pregnancy [Unknown]
  - Impaired reasoning [Unknown]
  - Ear disorder [Unknown]
  - Dysmorphism [Not Recovered/Not Resolved]
  - Gait disturbance [Unknown]
  - Dyspraxia [Not Recovered/Not Resolved]
  - Pharyngeal disorder [Unknown]
  - Disturbance in attention [Not Recovered/Not Resolved]
  - Learning disorder [Not Recovered/Not Resolved]
  - Plagiocephaly [Unknown]
  - Disinhibition [Unknown]
  - Disturbance in attention [Unknown]
  - Talipes [Unknown]
  - Hypermobility syndrome [Unknown]
  - Rhinitis [Unknown]
  - Oropharyngeal pain [Unknown]
  - Reading disorder [Unknown]
  - Ear infection [Unknown]
  - Dyslexia [Not Recovered/Not Resolved]
  - Pharyngitis [Unknown]

NARRATIVE: CASE EVENT DATE: 20080312
